FAERS Safety Report 8801342 (Version 1)
Quarter: 2012Q4

REPORT INFORMATION
  Report Type: 
  Country: ES (occurrence: ES)
  Receive Date: 20120921
  Receipt Date: 20120921
  Transmission Date: 20130627
  Serious: Yes (Hospitalization)
  Sender: FDA-Public Use
  Company Number: ES-NOVOPROD-359970

PATIENT
  Age: 76 Year
  Sex: Female

DRUGS (5)
  1. LEVEMIR FLEXPEN [Suspect]
     Indication: TYPE 2 DIABETES MELLITUS
     Dosage: 20 U, qd
     Route: 058
     Dates: end: 20120114
  2. DEPRAX                             /00447702/ [Concomitant]
     Indication: DEPRESSION
     Dosage: 100 mg, qd
     Route: 048
  3. LYRICA [Concomitant]
     Indication: DEPRESSION
     Dosage: 175 mg, qd
     Route: 048
  4. MADOPAR [Concomitant]
     Indication: PARKINSON^S DISEASE
     Dosage: 1 g, qd
     Route: 048
  5. ORFIDAL [Concomitant]
     Indication: INSOMNIA
     Dosage: 1 mg, qd
     Route: 048

REACTIONS (2)
  - Aspiration bronchial [Recovered/Resolved]
  - Hypoglycaemia [Recovered/Resolved]
